FAERS Safety Report 19694180 (Version 4)
Quarter: 2021Q3

REPORT INFORMATION
  Report Type: Spontaneous
  Country: GB (occurrence: GB)
  Receive Date: 20210813
  Receipt Date: 20210917
  Transmission Date: 20211014
  Serious: Yes (Other)
  Sender: FDA-Public Use
  Company Number: GB-NOVOPROD-835923

PATIENT
  Age: 64 Year
  Sex: Male

DRUGS (3)
  1. VICTOZA [Suspect]
     Active Substance: LIRAGLUTIDE
     Indication: TYPE 2 DIABETES MELLITUS
     Dosage: 1.2 MG, QD
     Route: 065
     Dates: start: 20181214
  2. MEBEVERINE [Concomitant]
     Active Substance: MEBEVERINE
     Dosage: 135 MG, TID
     Route: 048
     Dates: start: 20201216
  3. METFORMIN [Concomitant]
     Active Substance: METFORMIN HYDROCHLORIDE
     Dosage: 1 G, QD
     Route: 048
     Dates: start: 20131030

REACTIONS (1)
  - Diffuse large B-cell lymphoma [Unknown]

NARRATIVE: CASE EVENT DATE: 202101
